FAERS Safety Report 6651366-3 (Version None)
Quarter: 2010Q1

REPORT INFORMATION
  Report Type: 
  Country: None (occurrence: None)
  Receive Date: 20100325
  Receipt Date: 20100303
  Transmission Date: 20100710
  Serious: Yes (Death, Other)
  Sender: FDA-Public Use
  Company Number: GB-SANOFI-AVENTIS-2010SA016693

PATIENT
  Age: 51 Year
  Sex: Female

DRUGS (10)
  1. FLUDARABINE PHOSPHATE [Suspect]
     Route: 048
  2. FLUDARABINE PHOSPHATE [Suspect]
     Indication: STEM CELL TRANSPLANT
     Route: 048
  3. CAMPATH [Suspect]
     Route: 065
  4. CAMPATH [Suspect]
     Indication: STEM CELL TRANSPLANT
     Route: 065
  5. CYTARABINE [Suspect]
     Route: 065
  6. GRANULOCYTE COLONY STIMULATING FACTOR [Suspect]
     Route: 065
  7. BUSULFEX [Suspect]
     Indication: STEM CELL TRANSPLANT
     Route: 065
  8. PREDNISOLONE [Concomitant]
     Route: 048
  9. VENOGLOBULIN [Concomitant]
     Indication: AUTOIMMUNE THROMBOCYTOPENIA
     Route: 042
  10. MYCOPHENOLATE MOFETIL [Concomitant]
     Indication: PROPHYLAXIS AGAINST GRAFT VERSUS HOST DISEASE

REACTIONS (7)
  - ACUTE GRAFT VERSUS HOST DISEASE IN INTESTINE [None]
  - ADENOVIRUS INFECTION [None]
  - ANTI-PLATELET ANTIBODY POSITIVE [None]
  - AUTOIMMUNE THROMBOCYTOPENIA [None]
  - GASTROINTESTINAL HAEMORRHAGE [None]
  - HLA MARKER STUDY POSITIVE [None]
  - REFRACTORINESS TO PLATELET TRANSFUSION [None]
